FAERS Safety Report 8771587 (Version 1)
Quarter: 2012Q4

REPORT INFORMATION
  Report Type: 
  Country: US (occurrence: US)
  Receive Date: 20120906
  Receipt Date: 20120906
  Transmission Date: 20130627
  Serious: No
  Sender: FDA-Public Use
  Company Number: US-VERTEX PHARMACEUTICAL INC.-2012-020231

PATIENT

DRUGS (6)
  1. VX-950 [Suspect]
     Indication: HEPATITIS C
     Dosage: 750 mg, tid
     Route: 048
     Dates: start: 20120802
  2. PEGASYS [Concomitant]
     Indication: HEPATITIS C
     Dosage: 180 mcg/kg/week
     Route: 058
     Dates: start: 20120802
  3. RIBASPHERE [Concomitant]
     Indication: HEPATITIS C
     Dosage: 1000 mg, qd
     Route: 048
     Dates: start: 20120802
  4. ASTEPRO [Concomitant]
     Dosage: UNK
  5. FLONASE [Concomitant]
     Dosage: UNK, qd
  6. PREVACID [Concomitant]
     Dosage: UNK, qd
     Route: 048

REACTIONS (5)
  - Dry mouth [Unknown]
  - Headache [Unknown]
  - Fatigue [Unknown]
  - Nausea [Unknown]
  - Diarrhoea [Unknown]
